FAERS Safety Report 10901757 (Version 2)
Quarter: 2015Q3

REPORT INFORMATION
  Report Type: Spontaneous
  Country: FI (occurrence: FI)
  Receive Date: 20150310
  Receipt Date: 20150706
  Transmission Date: 20151125
  Serious: Yes (Death)
  Sender: FDA-Public Use
  Company Number: FI-SA-2015SA028125

PATIENT
  Age: 74 Year
  Sex: Female

DRUGS (1)
  1. DOCETAXEL. [Suspect]
     Active Substance: DOCETAXEL
     Indication: BREAST CANCER METASTATIC
     Route: 065

REACTIONS (8)
  - Pulmonary necrosis [Fatal]
  - Pyrexia [Fatal]
  - C-reactive protein increased [Fatal]
  - Lung consolidation [Fatal]
  - Dyspnoea [Fatal]
  - Cough [Fatal]
  - Diffuse alveolar damage [Fatal]
  - Computerised tomogram thorax abnormal [Fatal]

NARRATIVE: CASE EVENT DATE: 20100529
